FAERS Safety Report 12833385 (Version 2)
Quarter: 2016Q4

REPORT INFORMATION
  Report Type: Report from Study
  Country: CA (occurrence: CA)
  Receive Date: 20161010
  Receipt Date: 20161027
  Transmission Date: 20170207
  Serious: No
  Sender: FDA-Public Use
  Company Number: CA-JNJFOC-20161005034

PATIENT
  Age: 30 Year
  Sex: Female
  Weight: 62.5 kg

DRUGS (1)
  1. REMICADE [Suspect]
     Active Substance: INFLIXIMAB
     Indication: ANKYLOSING SPONDYLITIS
     Route: 042
     Dates: start: 20090407

REACTIONS (1)
  - Skin lesion [Recovered/Resolved]

NARRATIVE: CASE EVENT DATE: 20160927
